FAERS Safety Report 4757715-5 (Version None)
Quarter: 2005Q3

REPORT INFORMATION
  Report Type: 
  Country: None (occurrence: None)
  Receive Date: 20050831
  Receipt Date: 20050822
  Transmission Date: 20060218
  Serious: Yes (Other)
  Sender: FDA-Public Use
  Company Number: PHEH2005US09403

PATIENT
  Age: 57 Year
  Sex: Female

DRUGS (2)
  1. ZOMETA [Suspect]
     Indication: METASTASES TO BONE
     Dosage: UNK, UNK
     Dates: start: 20010101, end: 20050701
  2. FASLODEX [Concomitant]
     Dates: start: 20050301

REACTIONS (8)
  - ASEPTIC NECROSIS BONE [None]
  - DENTAL CLEANING [None]
  - DENTAL OPERATION [None]
  - FACIAL PAIN [None]
  - GINGIVAL SWELLING [None]
  - PURULENT DISCHARGE [None]
  - SWELLING FACE [None]
  - TOOTH EXTRACTION [None]
